FAERS Safety Report 9669701 (Version 3)
Quarter: 2013Q4

REPORT INFORMATION
  Report Type: Spontaneous
  Country: US (occurrence: US)
  Receive Date: 20131105
  Receipt Date: 20131107
  Transmission Date: 20140711
  Serious: Yes (Hospitalization, Other)
  Sender: FDA-Public Use
  Company Number: US-ROCHE-GNE269929

PATIENT
  Age: 46 Year
  Sex: Female
  Weight: 112.5 kg

DRUGS (18)
  1. XOLAIR [Suspect]
     Indication: ASTHMA
     Dosage: 300 MG, Q4W
     Route: 058
     Dates: start: 20080812, end: 20081015
  2. CLARITIN [Suspect]
     Indication: HYPERSENSITIVITY
     Dosage: UNK
     Route: 065
     Dates: start: 200707
  3. SOLU-MEDROL [Suspect]
     Indication: CHRONIC OBSTRUCTIVE PULMONARY DISEASE
     Dosage: UNK
     Route: 048
     Dates: start: 200802
  4. ADVAIR [Concomitant]
     Indication: ASTHMA
     Dosage: UNK
     Route: 065
     Dates: start: 2001
  5. SPIRIVA [Concomitant]
     Indication: CHRONIC OBSTRUCTIVE PULMONARY DISEASE
     Dosage: QD
     Route: 065
     Dates: start: 20080625
  6. SPIRIVA [Concomitant]
     Indication: ASTHMA
     Route: 065
     Dates: start: 200803
  7. SINGULAIR [Concomitant]
     Indication: ASTHMA
     Dosage: 10 MG, QD
     Route: 065
     Dates: start: 20080715
  8. SINGULAIR [Concomitant]
     Route: 048
     Dates: start: 2000
  9. ALBUTEROL [Concomitant]
     Indication: ASTHMA
     Dosage: UNK
     Route: 065
     Dates: start: 1990
  10. LEVAQUIN [Concomitant]
     Indication: PRODUCT USED FOR UNKNOWN INDICATION
  11. SYNTHROID [Concomitant]
     Indication: HYPOTHYROIDISM
     Dosage: UNK
     Route: 048
     Dates: start: 199902
  12. SYNTHROID [Concomitant]
     Dosage: UNK
     Route: 048
     Dates: start: 20081202
  13. PROTONIX (OMEPRAZOLE) [Concomitant]
     Indication: GASTROOESOPHAGEAL REFLUX DISEASE
     Dosage: 40 UNK, QD
     Route: 048
     Dates: start: 199902
  14. OXYGEN [Concomitant]
     Indication: CHRONIC OBSTRUCTIVE PULMONARY DISEASE
     Dosage: 20 L/MIN, UNK
     Route: 065
     Dates: start: 200801
  15. XOPENEX [Concomitant]
     Indication: ASTHMA
     Dosage: 1.25MG/3ML QD
     Route: 055
     Dates: start: 20081202
  16. ASPIRIN [Concomitant]
     Indication: PROPHYLAXIS
     Dosage: 81 MG, QD
     Route: 048
     Dates: start: 20080625
  17. NEBULIZER (UNK INGREDIENTS) [Concomitant]
     Indication: ASTHMA
     Dosage: UNK
     Route: 065
     Dates: start: 199905
  18. NEBULIZER (UNK INGREDIENTS) [Concomitant]
     Indication: CHRONIC OBSTRUCTIVE PULMONARY DISEASE

REACTIONS (1)
  - Anaphylactic reaction [Unknown]
